FAERS Safety Report 9085048 (Version 1)
Quarter: 2013Q1

REPORT INFORMATION
  Report Type: Report from Study
  Country: US (occurrence: US)
  Receive Date: 20130131
  Receipt Date: 20130131
  Transmission Date: 20140127
  Serious: Yes (Hospitalization, Other)
  Sender: FDA-Public Use
  Company Number: US-ABBOTT-12P-163-0996201-00

PATIENT
  Age: 57 None
  Sex: Female

DRUGS (4)
  1. HUMIRA PEN [Suspect]
     Indication: RHEUMATOID ARTHRITIS
     Dates: start: 201207
  2. METHOTREXATE [Concomitant]
     Indication: RHEUMATOID ARTHRITIS
  3. NAPROXEN [Concomitant]
     Indication: PAIN
  4. METOPROLOL [Concomitant]
     Indication: HYPERTENSION

REACTIONS (4)
  - Tendon rupture [Not Recovered/Not Resolved]
  - Injection site reaction [Unknown]
  - Injection site reaction [Unknown]
  - Bone disorder [Unknown]
